FAERS Safety Report 9665971 (Version 1)
Quarter: 2013Q4

REPORT INFORMATION
  Report Type: Spontaneous
  Country: US (occurrence: US)
  Receive Date: 20131104
  Receipt Date: 20131104
  Transmission Date: 20140711
  Serious: Yes (Other)
  Sender: FDA-Public Use
  Company Number: US-MALLINCKRODT-T201304738

PATIENT
  Age: 40 Year
  Sex: Female

DRUGS (2)
  1. OPTIRAY [Suspect]
     Indication: COMPUTERISED TOMOGRAM
     Dosage: 125 ML, SINGLE
     Route: 042
     Dates: start: 20131025, end: 20131025
  2. ESTRATEST [Concomitant]

REACTIONS (7)
  - Wheezing [Recovered/Resolved]
  - Lip swelling [Recovered/Resolved]
  - Flushing [Recovered/Resolved]
  - Cough [Recovered/Resolved]
  - Urticaria [Recovered/Resolved]
  - Pruritus [Recovered/Resolved]
  - Heart rate increased [Recovered/Resolved]
